FAERS Safety Report 21312179 (Version 1)
Quarter: 2022Q3

REPORT INFORMATION
  Report Type: Spontaneous
  Country: US (occurrence: None)
  Receive Date: 20220909
  Receipt Date: 20220909
  Transmission Date: 20221026
  Serious: No
  Sender: FDA-Public Use
  Company Number: US-ARIS GLOBAL-202204-0765

PATIENT
  Age: 73 Year
  Sex: Female

DRUGS (9)
  1. OXERVATE [Suspect]
     Active Substance: CENEGERMIN-BKBJ
     Indication: Neurotrophic keratopathy
     Route: 047
     Dates: start: 20220420
  2. HAIR VITAMIN [Concomitant]
  3. SIMVASTATIN [Concomitant]
     Active Substance: SIMVASTATIN
  4. ZOLPIDEM TARTRATE [Concomitant]
     Active Substance: ZOLPIDEM TARTRATE
  5. FISH OIL [Concomitant]
     Active Substance: FISH OIL
     Dosage: 100-160 MG
  6. CALCIUM [Concomitant]
     Active Substance: CALCIUM
     Dosage: 250 MG -12.5
  7. VITAMINS [Concomitant]
     Active Substance: VITAMINS
  8. LEVOTHYROXINE [Concomitant]
     Active Substance: LEVOTHYROXINE
  9. OMEPRAZOLE [Concomitant]
     Active Substance: OMEPRAZOLE
     Dosage: DELAYED RELEASE

REACTIONS (2)
  - Eye pain [Not Recovered/Not Resolved]
  - Asthenopia [Not Recovered/Not Resolved]

NARRATIVE: CASE EVENT DATE: 20220401
